FAERS Safety Report 12798254 (Version 8)
Quarter: 2017Q4

REPORT INFORMATION
  Report Type: Spontaneous
  Country: US (occurrence: US)
  Receive Date: 20160930
  Receipt Date: 20171024
  Transmission Date: 20180320
  Serious: Yes (Life-Threatening, Other)
  Sender: FDA-Public Use
  Company Number: US-JNJFOC-20160926365

PATIENT
  Sex: Female
  Weight: 83.92 kg

DRUGS (4)
  1. METRONIDAZOLE. [Suspect]
     Active Substance: METRONIDAZOLE
     Indication: PRODUCT USED FOR UNKNOWN INDICATION
     Dosage: FOR 10 DAYS
     Route: 048
     Dates: start: 20101022, end: 2010
  2. DRISTAN NASAL [Concomitant]
     Indication: UPPER-AIRWAY COUGH SYNDROME
     Route: 048
  3. ACYCLOVIR. [Concomitant]
     Active Substance: ACYCLOVIR
     Route: 048
     Dates: start: 20100929
  4. LEVAQUIN [Suspect]
     Active Substance: LEVOFLOXACIN
     Indication: LUNG INFECTION
     Dosage: FOR 10 DAYS
     Route: 048
     Dates: start: 20101022, end: 2010

REACTIONS (9)
  - Gait inability [Not Recovered/Not Resolved]
  - Neuropathy peripheral [Not Recovered/Not Resolved]
  - Balance disorder [Not Recovered/Not Resolved]
  - Hypoacusis [Unknown]
  - Dyspnoea [Unknown]
  - Spasmodic dysphonia [Not Recovered/Not Resolved]
  - Gastrointestinal disorder [Not Recovered/Not Resolved]
  - Poisoning [Unknown]
  - Constipation [Unknown]

NARRATIVE: CASE EVENT DATE: 2010
